FAERS Safety Report 7757014-3 (Version None)
Quarter: 2011Q3

REPORT INFORMATION
  Report Type: 
  Country: None (occurrence: None)
  Receive Date: 20110916
  Receipt Date: 20110913
  Transmission Date: 20111222
  Serious: Yes (Death, Hospitalization)
  Sender: FDA-Public Use
  Company Number: JP-PFIZER INC-2011049483

PATIENT
  Age: 76 Year
  Sex: Female

DRUGS (2)
  1. CELECOXIB [Suspect]
     Indication: RHEUMATOID ARTHRITIS
     Dosage: 200 MG, DAILY
     Route: 048
     Dates: start: 20080215, end: 20081021
  2. INDOMETACIN [Concomitant]

REACTIONS (2)
  - DEATH [None]
  - CARDIAC ARREST [None]
